FAERS Safety Report 4592676-3 (Version None)
Quarter: 2005Q1

REPORT INFORMATION
  Report Type: 
  Country: None (occurrence: None)
  Receive Date: 20050222
  Receipt Date: 20050112
  Transmission Date: 20050727
  Serious: Yes (Hospitalization)
  Sender: FDA-Public Use
  Company Number: 2005030810

PATIENT
  Age: 47 Year
  Sex: Female

DRUGS (4)
  1. MINOXIDIL [Suspect]
     Indication: ALOPECIA
     Dates: start: 20030601, end: 20041106
  2. FLECAINIDE ACETATE [Concomitant]
  3. DRUG, UNSPECIFIED            (DRUG UNSPECIFIED) [Concomitant]
  4. ORAL CONTRACEPTIVE NOS [Concomitant]

REACTIONS (5)
  - ARTHRALGIA [None]
  - BURNING SENSATION [None]
  - MUSCLE SPASMS [None]
  - MYALGIA [None]
  - TENDONITIS [None]
